FAERS Safety Report 13275010 (Version 2)
Quarter: 2017Q1

REPORT INFORMATION
  Report Type: Report from Study
  Country: None (occurrence: FR)
  Receive Date: 20170227
  Receipt Date: 20170303
  Transmission Date: 20170428
  Serious: Yes (Other)
  Sender: FDA-Public Use
  Company Number: FR-ABBVIE-17P-056-1882753-00

PATIENT
  Age: 52 Year
  Sex: Male
  Weight: 110 kg

DRUGS (5)
  1. VIEKIRAX [Suspect]
     Active Substance: OMBITASVIR\PARITAPREVIR\RITONAVIR
     Indication: HEPATITIS C
     Dosage: 75/50/12.5 MG
     Route: 048
     Dates: start: 20130422, end: 20130714
  2. SKENAN [Suspect]
     Active Substance: MORPHINE SULFATE
     Indication: PANCREATITIS
     Dosage: 30MG
     Route: 065
     Dates: start: 20060418
  3. EXVIERA [Suspect]
     Active Substance: DASABUVIR
     Indication: HEPATITIS C
     Dosage: 250MG
     Route: 048
     Dates: start: 20130422, end: 20130714
  4. RIBAVIRIN. [Suspect]
     Active Substance: RIBAVIRIN
     Indication: HEPATITIS C
     Dosage: 1000MG
     Route: 065
     Dates: start: 20130422, end: 20130714
  5. ACTISKENAN [Suspect]
     Active Substance: MORPHINE SULFATE
     Indication: PANCREATITIS
     Dosage: 2.5MG
     Route: 065
     Dates: start: 20060418

REACTIONS (4)
  - Hepatocellular carcinoma [Not Recovered/Not Resolved]
  - Hepatic neoplasm [Recovering/Resolving]
  - Portal vein thrombosis [Unknown]
  - Hypoperfusion [Unknown]

NARRATIVE: CASE EVENT DATE: 20150105
